FAERS Safety Report 6376590-9 (Version None)
Quarter: 2009Q3

REPORT INFORMATION
  Report Type: 
  Country: None (occurrence: None)
  Receive Date: 20090925
  Receipt Date: 20090914
  Transmission Date: 20100115
  Serious: No
  Sender: FDA-Public Use
  Company Number: PHHY2009GB20189

PATIENT
  Sex: Female

DRUGS (1)
  1. TASIGNA [Suspect]
     Indication: CHRONIC MYELOID LEUKAEMIA
     Dosage: BID
     Route: 065

REACTIONS (8)
  - DIZZINESS [None]
  - DRY SKIN [None]
  - EYE PAIN [None]
  - FEELING ABNORMAL [None]
  - HUNGER [None]
  - HYPERHIDROSIS [None]
  - INCREASED APPETITE [None]
  - MEDICATION ERROR [None]
